FAERS Safety Report 22052483 (Version 1)
Quarter: 2023Q1

REPORT INFORMATION
  Report Type: Spontaneous
  Country: IR (occurrence: IR)
  Receive Date: 20230302
  Receipt Date: 20230302
  Transmission Date: 20230417
  Serious: Yes (Hospitalization)
  Sender: FDA-Public Use
  Company Number: IR-PADAGIS-2023PAD00254

PATIENT

DRUGS (1)
  1. NALOXONE HYDROCHLORIDE [Suspect]
     Active Substance: NALOXONE HYDROCHLORIDE
     Indication: Overdose
     Dosage: UNK
     Route: 065

REACTIONS (3)
  - Agitation [Unknown]
  - Restlessness [Unknown]
  - Withdrawal syndrome [Unknown]
